FAERS Safety Report 19148740 (Version 1)
Quarter: 2021Q2

REPORT INFORMATION
  Report Type: Spontaneous
  Country: DK (occurrence: DK)
  Receive Date: 20210416
  Receipt Date: 20210416
  Transmission Date: 20210717
  Serious: Yes (Hospitalization, Other)
  Sender: FDA-Public Use
  Company Number: DK-BAUSCH-BL-2021-012145

PATIENT
  Age: 77 Year
  Sex: Male

DRUGS (18)
  1. MEROPENEM. [Concomitant]
     Active Substance: MEROPENEM
     Indication: PYREXIA
     Route: 065
     Dates: start: 20160104, end: 20160108
  2. CALCIUM CHLORIDE. [Concomitant]
     Active Substance: CALCIUM CHLORIDE
     Indication: SUPPLEMENTATION THERAPY
     Dosage: 2 TABLET
     Route: 065
     Dates: start: 20150211
  3. APIXABAN [Concomitant]
     Active Substance: APIXABAN
     Route: 065
     Dates: start: 20160113
  4. AMOXICILLIN. [Concomitant]
     Active Substance: AMOXICILLIN
     Route: 065
     Dates: start: 20151217, end: 20151229
  5. AMOXICILLIN. [Concomitant]
     Active Substance: AMOXICILLIN
     Route: 065
     Dates: start: 20160108, end: 20160113
  6. DALTEPARIN [Concomitant]
     Active Substance: DALTEPARIN
     Indication: THROMBOSIS PROPHYLAXIS
     Route: 065
     Dates: start: 20151215, end: 20160112
  7. VITAMIN B [Concomitant]
     Active Substance: VITAMIN B
     Indication: VITAMIN SUPPLEMENTATION
     Dosage: 1 OTHER?DOSE: 1
     Route: 065
     Dates: start: 20130418
  8. CIPROFLOXACIN. [Concomitant]
     Active Substance: CIPROFLOXACIN
     Indication: PYREXIA
     Route: 065
     Dates: start: 20151230
  9. CIPROFLOXACIN. [Concomitant]
     Active Substance: CIPROFLOXACIN
     Route: 065
     Dates: start: 20151217, end: 20151229
  10. TAZOBACTAM [Concomitant]
     Active Substance: TAZOBACTAM
     Indication: PYREXIA
     Route: 065
     Dates: start: 20151230, end: 20160104
  11. PARACETAMOL [Concomitant]
     Active Substance: ACETAMINOPHEN
     Indication: PAIN
     Route: 065
     Dates: start: 20151117
  12. POMALIDOMIDE [Suspect]
     Active Substance: POMALIDOMIDE
     Indication: PLASMA CELL MYELOMA
     Dosage: 4 MILLIGRAM
     Route: 048
     Dates: start: 20151215, end: 20160111
  13. ZOPICLONE [Concomitant]
     Active Substance: ZOPICLONE
     Indication: PROPHYLAXIS
     Route: 065
     Dates: start: 20150323
  14. SULFAMETHOXAZOLE W/TRIMETHOPRIM [Concomitant]
     Active Substance: SULFAMETHOXAZOLE\TRIMETHOPRIM
     Indication: INFECTION PROPHYLAXIS
     Dosage: 400/80MG?DOSE: 1
     Route: 065
     Dates: start: 20160106
  15. DEXAMETHASONE. [Suspect]
     Active Substance: DEXAMETHASONE
     Indication: PLASMA CELL MYELOMA
     Route: 065
     Dates: start: 20151215, end: 20160105
  16. APIXABAN [Concomitant]
     Active Substance: APIXABAN
     Indication: THROMBOSIS PROPHYLAXIS
     Route: 065
     Dates: start: 20160112
  17. CIPROFLOXACIN. [Concomitant]
     Active Substance: CIPROFLOXACIN
     Route: 065
     Dates: start: 20160121
  18. AMOXICILLIN. [Concomitant]
     Active Substance: AMOXICILLIN
     Indication: PYREXIA
     Route: 065
     Dates: start: 20160121

REACTIONS (2)
  - Pyrexia [Recovered/Resolved]
  - Atrial fibrillation [Not Recovered/Not Resolved]

NARRATIVE: CASE EVENT DATE: 20151230
